FAERS Safety Report 4691722-6 (Version None)
Quarter: 2005Q2

REPORT INFORMATION
  Report Type: 
  Country: None (occurrence: None)
  Receive Date: 20050616
  Receipt Date: 20050607
  Transmission Date: 20051028
  Serious: Yes (Other)
  Sender: FDA-Public Use
  Company Number: 200515495GDDC

PATIENT
  Age: 83 Year
  Sex: Male

DRUGS (8)
  1. FRUSEMIDE [Suspect]
     Route: 048
     Dates: end: 20011211
  2. INDAPAMIDE [Suspect]
     Route: 048
     Dates: end: 20011211
  3. PRAZOSIN HCL [Suspect]
     Route: 048
     Dates: end: 20011211
  4. AMIODARONE [Suspect]
     Route: 048
  5. ROFECOXIB [Suspect]
     Route: 048
     Dates: end: 20011211
  6. GLIPIZIDE [Concomitant]
     Route: 048
  7. PANTOPRAZOLE [Concomitant]
     Route: 048
  8. RAMIPRIL [Concomitant]
     Route: 048

REACTIONS (7)
  - BRADYCARDIA [None]
  - HYPOXIA [None]
  - NAUSEA [None]
  - ORTHOSTATIC HYPOTENSION [None]
  - PALLOR [None]
  - PULMONARY FIBROSIS [None]
  - SYNCOPE [None]
